FAERS Safety Report 4278141-1 (Version None)
Quarter: 2004Q1

REPORT INFORMATION
  Report Type: 
  Country: None (occurrence: None)
  Receive Date: 20040121
  Receipt Date: 20040112
  Transmission Date: 20041129
  Serious: Yes (Disabling)
  Sender: FDA-Public Use
  Company Number: NO-JNJFOC-20040100637

PATIENT
  Age: 44 Year
  Sex: Male

DRUGS (4)
  1. REMICADE [Suspect]
     Indication: ANKYLOSING SPONDYLITIS
     Dosage: INTRAVENOUS
     Route: 042
  2. CLOTRIMAZOLE (CLOTRIMAZOLE) [Concomitant]
  3. FLUTIVATE (FLUTICASONE PROPIONATE) [Concomitant]
  4. METHOTREXATE [Concomitant]

REACTIONS (1)
  - RASH PAPULAR [None]
